FAERS Safety Report 9416107 (Version 3)
Quarter: 2014Q3

REPORT INFORMATION
  Report Type: Spontaneous
  Country: US (occurrence: None)
  Receive Date: 20130717
  Receipt Date: 20140815
  Transmission Date: 20150326
  Serious: Yes (Hospitalization)
  Sender: FDA-Public Use
  Company Number: 2013US001945

PATIENT
  Age: 80 Year
  Sex: Female
  Weight: 70 kg

DRUGS (14)
  1. PHENYLBUTAZONE [Concomitant]
     Active Substance: PHENYLBUTAZONE
  2. TOPROL XL [Concomitant]
     Active Substance: METOPROLOL SUCCINATE
  3. IMIPRAMINE PAMOATE. [Concomitant]
     Active Substance: IMIPRAMINE PAMOATE
  4. QUININE SULFATE. [Concomitant]
     Active Substance: QUININE SULFATE
  5. ACTONEL [Concomitant]
     Active Substance: RISEDRONATE SODIUM
  6. FUROSEMIDE. [Concomitant]
     Active Substance: FUROSEMIDE
  7. DIGOXIN. [Concomitant]
     Active Substance: DIGOXIN
  8. LEVOTHYROXINE [Concomitant]
     Active Substance: LEVOTHYROXINE
  9. ICLUSIG [Suspect]
     Active Substance: PONATINIB
     Indication: CHRONIC MYELOID LEUKAEMIA
     Route: 048
     Dates: start: 20130222, end: 201304
  10. CRESTOR [Concomitant]
     Active Substance: ROSUVASTATIN CALCIUM
  11. GABAPENTIN. [Concomitant]
     Active Substance: GABAPENTIN
  12. CENTRUM SILVER [Concomitant]
     Active Substance: VITAMINS
  13. PLAVIX [Concomitant]
     Active Substance: CLOPIDOGREL BISULFATE
  14. CHLORODITRIN [Concomitant]

REACTIONS (6)
  - Coronary arterial stent insertion [None]
  - Condition aggravated [None]
  - Cardiac failure congestive [None]
  - Rash [None]
  - Hypotension [None]
  - Coronary artery disease [None]

NARRATIVE: CASE EVENT DATE: 201304
